FAERS Safety Report 21212720 (Version 1)
Quarter: 2022Q3

REPORT INFORMATION
  Report Type: Spontaneous
  Country: US (occurrence: None)
  Receive Date: 20220813
  Receipt Date: 20220813
  Transmission Date: 20221026
  Serious: Yes (Hospitalization)
  Sender: FDA-Public Use
  Company Number: None

PATIENT
  Age: 24 Year
  Sex: Female

DRUGS (15)
  1. ZENPEP [Suspect]
     Active Substance: PANCRELIPASE AMYLASE\PANCRELIPASE LIPASE\PANCRELIPASE PROTEASE
     Indication: Infective pulmonary exacerbation of cystic fibrosis
     Dosage: OTHER QUANTITY : 15000-47000 UNIT;?FREQUENCY: TAKE 3 CAPSULES BY MOUTH 3 TIMES DAILY WITH MEALS AND
     Route: 048
     Dates: start: 20220525
  2. ALBUTEROL [Concomitant]
     Active Substance: ALBUTEROL
  3. GLUCAGON [Concomitant]
     Active Substance: GLUCAGON
  4. IPRATROPIUM/ SOL ALBUTER [Concomitant]
  5. MVW COMPLETE CAP FORMULAT [Concomitant]
  6. NOVOLOG [Concomitant]
     Active Substance: INSULIN ASPART
  7. OMEPRAZOLE [Concomitant]
     Active Substance: OMEPRAZOLE
  8. ONE TOUCH VERIO TEST STRIP [Concomitant]
  9. PULMOZYME [Concomitant]
     Active Substance: DORNASE ALFA
  10. SODIUM CHLORIDE INHALATION SOLUTION [Concomitant]
     Active Substance: SODIUM CHLORIDE
  11. SOD CHLORIDE INJ 0.9% [Concomitant]
  12. SODIUM CHLOR NEB 7% [Concomitant]
  13. TRIKAFTA [Concomitant]
     Active Substance: ELEXACAFTOR\IVACAFTOR\TEZACAFTOR
  14. VENTOLIN HFA [Concomitant]
     Active Substance: ALBUTEROL SULFATE
  15. VITAMIN D3 [Concomitant]
     Active Substance: CHOLECALCIFEROL

REACTIONS (1)
  - Infective pulmonary exacerbation of cystic fibrosis [None]

NARRATIVE: CASE EVENT DATE: 20220715
